FAERS Safety Report 4603432-1 (Version None)
Quarter: 2005Q2

REPORT INFORMATION
  Report Type: 
  Country: None (occurrence: None)
  Receive Date: 20050223
  Receipt Date: 20041105
  Transmission Date: 20051028
  Serious: No
  Sender: FDA-Public Use
  Company Number: 210272

PATIENT
  Age: 73 Year
  Sex: Female

DRUGS (2)
  1. RAPTIVA [Suspect]
     Indication: PSORIASIS
     Dosage: SINGLE, SUBCUTANEOUS
     Route: 058
     Dates: start: 20041102
  2. HORMONE REPLACEMENT (HORMONES NOS) [Concomitant]

REACTIONS (1)
  - SWELLING FACE [None]
